FAERS Safety Report 8349588-9 (Version None)
Quarter: 2012Q2

REPORT INFORMATION
  Report Type: 
  Country: None (occurrence: None)
  Receive Date: 20120510
  Receipt Date: 20120502
  Transmission Date: 20120825
  Serious: Yes (Hospitalization)
  Sender: FDA-Public Use
  Company Number: PHHO2012CH006585

PATIENT
  Sex: Male
  Weight: 75.5 kg

DRUGS (9)
  1. ALISKIREN [Suspect]
     Indication: CARDIAC FAILURE
     Dosage: UNK
     Route: 048
     Dates: start: 20110316
  2. ENALAPRIL MALEATE [Suspect]
     Indication: CARDIAC FAILURE
     Dosage: UNK
     Route: 048
     Dates: start: 20110316
  3. CORDARONE [Concomitant]
     Indication: CARDIAC FAILURE
     Dosage: 100 MG, UNK
     Dates: start: 20120201
  4. LAXOBERON [Concomitant]
     Indication: CONSTIPATION
     Dosage: 10 DRP, UNK
     Dates: start: 20111102
  5. ASPIRIN [Concomitant]
     Indication: CORONARY ARTERY DISEASE
     Dosage: 100 MG, UNK
     Dates: start: 20010222
  6. ALLOPURINOL [Concomitant]
     Indication: GOUT
     Dosage: 150 MG, UNK
     Dates: start: 20090804, end: 20120422
  7. MARCUMAR [Concomitant]
     Indication: ATRIAL FIBRILLATION
     Dosage: 3 MG, UNK
     Dates: start: 20080222
  8. ATORVASTATIN CALCIUM [Concomitant]
     Indication: CORONARY ARTERY DISEASE
     Dosage: 40 MG, UNK
     Dates: start: 20080222
  9. TORSEMIDE [Concomitant]
     Indication: CARDIAC FAILURE
     Dosage: 30 MG, UNK
     Dates: start: 20080222

REACTIONS (2)
  - RIGHT VENTRICULAR FAILURE [None]
  - RENAL FAILURE [None]
